FAERS Safety Report 4559353-6 (Version None)
Quarter: 2005Q1

REPORT INFORMATION
  Report Type: 
  Country: None (occurrence: None)
  Receive Date: 20050119
  Receipt Date: 20041210
  Transmission Date: 20050727
  Serious: Yes (Death, Congenital Anomaly)
  Sender: FDA-Public Use
  Company Number: A01200406328

PATIENT
  Sex: Female

DRUGS (2)
  1. MILRILA             (MILRINONE) [Suspect]
     Indication: CARDIAC DISORDER
     Dosage: SEE IMAGE
     Route: 041
     Dates: start: 20020725, end: 20020725
  2. MILRILA             (MILRINONE) [Suspect]
     Indication: CARDIAC DISORDER
     Dosage: SEE IMAGE
     Route: 041
     Dates: start: 20020726

REACTIONS (10)
  - CARDIAC ARREST NEONATAL [None]
  - DISSEMINATED INTRAVASCULAR COAGULATION [None]
  - NEONATAL CARDIAC FAILURE [None]
  - NEONATAL DISORDER [None]
  - OPERATIVE HAEMORRHAGE [None]
  - PATENT DUCTUS ARTERIOSUS [None]
  - PULMONARY HAEMORRHAGE [None]
  - PULMONARY OEDEMA NEONATAL [None]
  - RENAL IMPAIRMENT [None]
  - SHOCK HAEMORRHAGIC [None]
